FAERS Safety Report 8394804-0 (Version None)
Quarter: 2012Q2

REPORT INFORMATION
  Report Type: 
  Country: None (occurrence: None)
  Receive Date: 20120530
  Receipt Date: 20120521
  Transmission Date: 20120825
  Serious: Yes (Hospitalization)
  Sender: FDA-Public Use
  Company Number: ES-BRISTOL-MYERS SQUIBB COMPANY-15858848

PATIENT
  Age: 56 Year
  Sex: Male

DRUGS (1)
  1. SPRYCEL [Suspect]
     Indication: CHRONIC MYELOID LEUKAEMIA
     Dosage: DRUG INTERRUPTED 23JUN2011
     Dates: start: 20070601, end: 20110601

REACTIONS (7)
  - PLEURAL EFFUSION [None]
  - PULMONARY HYPERTENSION [None]
  - WEIGHT INCREASED [None]
  - FATIGUE [None]
  - OEDEMA PERIPHERAL [None]
  - ABDOMINAL PAIN [None]
  - SLEEP APNOEA SYNDROME [None]
